FAERS Safety Report 19306394 (Version 1)
Quarter: 2021Q2

REPORT INFORMATION
  Report Type: Spontaneous
  Country: US (occurrence: US)
  Receive Date: 20210525
  Receipt Date: 20210525
  Transmission Date: 20210717
  Serious: Yes (Other)
  Sender: FDA-Public Use
  Company Number: None

PATIENT
  Sex: Female

DRUGS (2)
  1. DORZOLAMIDE/TIMOLOL PF [Suspect]
     Active Substance: DORZOLAMIDE\TIMOLOL
  2. AZOPT [Suspect]
     Active Substance: BRINZOLAMIDE

REACTIONS (8)
  - Drug hypersensitivity [None]
  - Eye pain [None]
  - Vision blurred [None]
  - Eye swelling [None]
  - Eye irritation [None]
  - Rash [None]
  - Erythema [None]
  - Visual impairment [None]
